FAERS Safety Report 23587986 (Version 2)
Quarter: 2024Q1

REPORT INFORMATION
  Report Type: Spontaneous
  Country: FR (occurrence: FR)
  Receive Date: 20240301
  Receipt Date: 20240307
  Transmission Date: 20240409
  Serious: Yes (Death, Hospitalization, Other)
  Sender: FDA-Public Use
  Company Number: FR-GILEAD-2024-0657707

PATIENT
  Age: 61 Year
  Sex: Male
  Weight: 87 kg

DRUGS (1)
  1. TECARTUS [Suspect]
     Active Substance: BREXUCABTAGENE AUTOLEUCEL
     Indication: Product used for unknown indication
     Dosage: 219 ML
     Route: 065
     Dates: start: 20240201, end: 20240201

REACTIONS (13)
  - Sarcopenia [Fatal]
  - Hemiplegia [Fatal]
  - Dysphagia [Fatal]
  - Fungaemia [Unknown]
  - Ischaemic stroke [Unknown]
  - Myocardial ischaemia [Unknown]
  - Ischaemia [Unknown]
  - Respiratory distress [Unknown]
  - Disseminated intravascular coagulation [Unknown]
  - Haemophagocytic lymphohistiocytosis [Unknown]
  - Immune effector cell-associated neurotoxicity syndrome [Unknown]
  - Cytokine release syndrome [Unknown]
  - Fungal endocarditis [Fatal]

NARRATIVE: CASE EVENT DATE: 20240227
